FAERS Safety Report 21615354 (Version 2)
Quarter: 2022Q4

REPORT INFORMATION
  Report Type: Spontaneous
  Country: US (occurrence: None)
  Receive Date: 20221118
  Receipt Date: 20221230
  Transmission Date: 20230113
  Serious: Yes (Other)
  Sender: FDA-Public Use
  Company Number: 2022A375140

PATIENT
  Age: 25494 Day
  Sex: Female
  Weight: 65.8 kg

DRUGS (3)
  1. SYMBICORT [Suspect]
     Active Substance: BUDESONIDE\FORMOTEROL FUMARATE DIHYDRATE
     Indication: Lung disorder
     Dosage: 160/4.5 MCG, 2 INHALATIONS 2 TIMES A DAY
     Route: 055
     Dates: start: 202210
  2. SYMBICORT [Suspect]
     Active Substance: BUDESONIDE\FORMOTEROL FUMARATE DIHYDRATE
     Indication: Dyspnoea
     Dosage: 160/4.5 MCG, 2 INHALATIONS 2 TIMES A DAY
     Route: 055
     Dates: start: 202210
  3. SYMBICORT [Suspect]
     Active Substance: BUDESONIDE\FORMOTEROL FUMARATE DIHYDRATE
     Indication: Cough
     Dosage: 160/4.5 MCG, 2 INHALATIONS 2 TIMES A DAY
     Route: 055
     Dates: start: 202210

REACTIONS (13)
  - Immunosuppression [Unknown]
  - Lymphoma [Unknown]
  - Upper limb fracture [Unknown]
  - Sinusitis [Unknown]
  - Lung disorder [Unknown]
  - Secretion discharge [Unknown]
  - Discomfort [Unknown]
  - Chronic obstructive pulmonary disease [Unknown]
  - Device use issue [Unknown]
  - Device malfunction [Unknown]
  - Wrong technique in device usage process [Unknown]
  - Product use in unapproved indication [Unknown]
  - Drug dose omission by device [Unknown]

NARRATIVE: CASE EVENT DATE: 20221110
